FAERS Safety Report 5583511-5 (Version None)
Quarter: 2008Q1

REPORT INFORMATION
  Report Type: 
  Country: None (occurrence: None)
  Receive Date: 20080107
  Receipt Date: 20071212
  Transmission Date: 20080703
  Serious: No
  Sender: FDA-Public Use
  Company Number: US-BOEHRINGER INGELHEIM PHARMACEUTICALS, INC.-2007-BP-25335BP

PATIENT
  Age: 74 Year
  Sex: Male
  Weight: 102 kg

DRUGS (6)
  1. SPIRIVA [Suspect]
     Indication: CHRONIC OBSTRUCTIVE PULMONARY DISEASE
     Route: 055
     Dates: start: 20070316
  2. ALBUTEROL [Concomitant]
  3. ADVAIR DISKUS 100/50 [Concomitant]
     Dates: end: 20071119
  4. LEVOTHYROXINE SODIUM [Concomitant]
     Dates: start: 20071119
  5. PORMNTEVAL + FLUTRIMAZOLE 220 [Concomitant]
  6. LISINOPRIL [Concomitant]

REACTIONS (4)
  - EYE PAIN [None]
  - NECK PAIN [None]
  - PAIN IN EXTREMITY [None]
  - VISION BLURRED [None]
